FAERS Safety Report 17015122 (Version 1)
Quarter: 2019Q4

REPORT INFORMATION
  Report Type: Report from Study
  Country: US (occurrence: US)
  Receive Date: 20191111
  Receipt Date: 20191111
  Transmission Date: 20200122
  Serious: Yes (Hospitalization)
  Sender: FDA-Public Use
  Company Number: US-ROCHE-1918506

PATIENT
  Sex: Male

DRUGS (1)
  1. RITUXIMAB. [Suspect]
     Active Substance: RITUXIMAB
     Indication: MYASTHENIA GRAVIS
     Dosage: ROUTE AND FORM AS PER PROTOCOL?TO BE ADMINISTERED WEEKLY CONSECUTIVELY FOR FOUR WEEKS AND THEN REPEA
     Route: 042

REACTIONS (1)
  - Pulmonary thrombosis [Recovered/Resolved with Sequelae]

NARRATIVE: CASE EVENT DATE: 20160127
